FAERS Safety Report 15092807 (Version 1)
Quarter: 2018Q2

REPORT INFORMATION
  Report Type: Spontaneous
  Country: US (occurrence: US)
  Receive Date: 20180608
  Receipt Date: 20180608
  Transmission Date: 20180711
  Serious: Yes (Life-Threatening, Hospitalization, Disabling)
  Sender: FDA-Public Use
  Company Number: None

PATIENT
  Age: 36 Year
  Sex: Female
  Weight: 66.6 kg

DRUGS (3)
  1. DEPO-PROVERA [Suspect]
     Active Substance: MEDROXYPROGESTERONE ACETATE
     Indication: CONTRACEPTION
     Dosage: ?          OTHER FREQUENCY:EVERY 3 MONTHS;?
     Route: 030
     Dates: start: 20000426, end: 20170301
  2. SLEEPING AID [Concomitant]
  3. EXCEDRIN [Concomitant]
     Active Substance: ACETAMINOPHEN\ASPIRIN\CAFFEINE

REACTIONS (10)
  - Cerebrovascular accident [None]
  - Gait disturbance [None]
  - Red blood cell enzymes abnormal [None]
  - Intracranial pressure increased [None]
  - Blood pressure increased [None]
  - Idiopathic intracranial hypertension [None]
  - Loss of consciousness [None]
  - Myocardial infarction [None]
  - Cachexia [None]
  - Heart rate increased [None]

NARRATIVE: CASE EVENT DATE: 20170101
